FAERS Safety Report 9886325 (Version 1)
Quarter: 2014Q1

REPORT INFORMATION
  Report Type: Spontaneous
  Country: FR (occurrence: FR)
  Receive Date: 20140210
  Receipt Date: 20140210
  Transmission Date: 20141002
  Serious: Yes (Other)
  Sender: FDA-Public Use
  Company Number: PHHY2014FR015567

PATIENT
  Age: 71 Year
  Sex: Male

DRUGS (2)
  1. VOLTARENE LP [Suspect]
     Dosage: 75 MG, UNK
     Route: 048
     Dates: start: 20131105
  2. PREVISCAN [Suspect]
     Indication: ARRHYTHMIA
     Dosage: 20 MG, UNK
     Route: 048
     Dates: end: 20131109

REACTIONS (1)
  - International normalised ratio increased [Recovered/Resolved]
